FAERS Safety Report 14956171 (Version 1)
Quarter: 2018Q2

REPORT INFORMATION
  Report Type: Spontaneous
  Country: US (occurrence: US)
  Receive Date: 20180531
  Receipt Date: 20180531
  Transmission Date: 20180711
  Serious: No
  Sender: FDA-Public Use
  Company Number: US-NOVEN PHARMACEUTICALS, INC.-US2018000176

PATIENT

DRUGS (11)
  1. DAYTRANA [Suspect]
     Active Substance: METHYLPHENIDATE
     Indication: ATTENTION DEFICIT/HYPERACTIVITY DISORDER
     Dosage: UNK
     Route: 062
  2. DAYTRANA [Suspect]
     Active Substance: METHYLPHENIDATE
     Dosage: 20 MG, UNKNOWN
     Route: 062
     Dates: start: 201804
  3. ABILIFY [Suspect]
     Active Substance: ARIPIPRAZOLE
     Indication: PRODUCT USED FOR UNKNOWN INDICATION
     Dosage: 5 MG, UNKNOWN
     Route: 065
     Dates: start: 20180420, end: 20180420
  4. MELATONIN [Concomitant]
     Active Substance: MELATONIN
     Indication: INSOMNIA
  5. DAYTRANA [Suspect]
     Active Substance: METHYLPHENIDATE
     Dosage: CUTTING 30 MG PATCH INTO 3/4TH TO MAKE 20 MG, UNK
     Route: 062
  6. DAYTRANA [Suspect]
     Active Substance: METHYLPHENIDATE
     Dosage: 20 MG, UNKNOWN
     Route: 062
  7. DAYTRANA [Suspect]
     Active Substance: METHYLPHENIDATE
     Dosage: 30 MG, UNKNOWN
     Route: 062
     Dates: start: 201804
  8. DAYTRANA [Suspect]
     Active Substance: METHYLPHENIDATE
     Dosage: 15 MG, UNK
     Route: 062
  9. DAYTRANA [Suspect]
     Active Substance: METHYLPHENIDATE
     Dosage: 18 MG, UNK
     Route: 062
  10. ABILIFY [Suspect]
     Active Substance: ARIPIPRAZOLE
     Dosage: 2.5 MG, UNKNOWN
     Route: 065
     Dates: start: 20180421
  11. DAYTRANA [Suspect]
     Active Substance: METHYLPHENIDATE
     Dosage: 10 MG, UNKNOWN
     Route: 062

REACTIONS (16)
  - Drug effect delayed [Unknown]
  - Drug effect decreased [Unknown]
  - Logorrhoea [Not Recovered/Not Resolved]
  - Drug ineffective [Not Recovered/Not Resolved]
  - Irritability [Not Recovered/Not Resolved]
  - Underweight [Not Recovered/Not Resolved]
  - Vomiting [Unknown]
  - Off label use [Not Recovered/Not Resolved]
  - Decreased appetite [Recovered/Resolved]
  - Psychomotor hyperactivity [Not Recovered/Not Resolved]
  - Tremor [Unknown]
  - Fluid intake reduced [Unknown]
  - Product adhesion issue [Not Recovered/Not Resolved]
  - Wrong technique in product usage process [Recovered/Resolved]
  - Asthenia [Unknown]
  - Aggression [Not Recovered/Not Resolved]

NARRATIVE: CASE EVENT DATE: 20180430
